FAERS Safety Report 12396696 (Version 1)
Quarter: 2016Q2

REPORT INFORMATION
  Report Type: Spontaneous
  Country: US (occurrence: None)
  Receive Date: 20160523
  Receipt Date: 20160523
  Transmission Date: 20160815
  Serious: No
  Sender: FDA-Public Use
  Company Number: None

PATIENT
  Age: 24 Year
  Sex: Male
  Weight: 70.31 kg

DRUGS (4)
  1. LISINOPRIL. [Concomitant]
     Active Substance: LISINOPRIL
  2. VITAMIN D3 [Concomitant]
     Active Substance: CHOLECALCIFEROL
  3. PREDNISONE, 20 MG WATSON [Suspect]
     Active Substance: PREDNISONE
     Indication: IGA NEPHROPATHY
     Dosage: 3 TABLET(S) ONCE A DAY TAKEN BY MOUTH
     Route: 048
  4. FISH OIL [Concomitant]
     Active Substance: FISH OIL

REACTIONS (1)
  - Sensitivity of teeth [None]

NARRATIVE: CASE EVENT DATE: 20150301
